FAERS Safety Report 13307323 (Version 1)
Quarter: 2017Q1

REPORT INFORMATION
  Report Type: Spontaneous
  Country: US (occurrence: US)
  Receive Date: 20170308
  Receipt Date: 20170308
  Transmission Date: 20170428
  Serious: No
  Sender: FDA-Public Use
  Company Number: US-PERRIGO-16US000856

PATIENT
  Age: 85 Year
  Sex: Female
  Weight: 46.26 kg

DRUGS (4)
  1. NAPROXEN SODIUM. [Suspect]
     Active Substance: NAPROXEN SODIUM
     Indication: PAIN IN EXTREMITY
  2. NAPROXEN SODIUM. [Suspect]
     Active Substance: NAPROXEN SODIUM
     Indication: BACK PAIN
     Dosage: 220 MG, 1 TO 2 TIMES DAILY, PRN
     Route: 048
     Dates: start: 20160121
  3. ACTONEL [Concomitant]
     Active Substance: RISEDRONATE SODIUM
     Indication: ROUTINE HEALTH MAINTENANCE
     Dosage: UNK, EVERY MONTH
     Route: 065
  4. NORVASC [Concomitant]
     Active Substance: AMLODIPINE BESYLATE
     Indication: HYPERTENSION
     Dosage: UNK
     Route: 065

REACTIONS (1)
  - Muscle spasms [Recovered/Resolved]

NARRATIVE: CASE EVENT DATE: 20160127
